FAERS Safety Report 9749168 (Version 1)
Quarter: 2013Q4

REPORT INFORMATION
  Report Type: Spontaneous
  Country: US (occurrence: US)
  Receive Date: 20131212
  Receipt Date: 20131212
  Transmission Date: 20140711
  Serious: No
  Sender: FDA-Public Use
  Company Number: US-TEVA-392959USA

PATIENT
  Age: 40 Year
  Sex: Female
  Weight: 81.72 kg

DRUGS (8)
  1. PARAGARD 380A [Suspect]
     Indication: CONTRACEPTION
     Route: 015
     Dates: start: 201207
  2. NORVASC [Concomitant]
     Indication: HYPERTENSION
     Route: 048
  3. LOSARTAN [Concomitant]
     Indication: HYPERTENSION
     Route: 048
  4. QVAR [Concomitant]
     Indication: ASTHMA
     Dosage: 160 MICROGRAM DAILY;
  5. UNSPECIFIED [Concomitant]
     Indication: BLOOD CHOLESTEROL INCREASED
  6. ZYRTEC [Concomitant]
     Indication: HYPERSENSITIVITY
  7. FIORICET [Concomitant]
     Indication: HEADACHE
     Route: 048
  8. TRAMADOL [Concomitant]
     Indication: HEADACHE

REACTIONS (2)
  - Metrorrhagia [Recovered/Resolved]
  - Pelvic pain [Recovered/Resolved]
